FAERS Safety Report 6763280-3 (Version None)
Quarter: 2010Q2

REPORT INFORMATION
  Report Type: 
  Country: None (occurrence: None)
  Receive Date: 20100608
  Receipt Date: 20100608
  Transmission Date: 20101027
  Serious: Yes (Hospitalization)
  Sender: FDA-Public Use
  Company Number: None

PATIENT
  Age: 43 Year
  Sex: Male
  Weight: 95.5 kg

DRUGS (2)
  1. ACCUTANE [Suspect]
     Indication: ACNE
     Dosage: 10MG ONCE A DAY 047 ; 20MG ONCE A DAY 047
     Dates: start: 19970101, end: 19990101
  2. ACCUTANE [Suspect]
     Indication: ACNE
     Dosage: 10MG ONCE A DAY 047 ; 20MG ONCE A DAY 047
     Dates: start: 19970101, end: 19990101

REACTIONS (1)
  - DIVERTICULITIS [None]
